FAERS Safety Report 9737462 (Version 2)
Quarter: 2013Q4

REPORT INFORMATION
  Report Type: Spontaneous
  Country: JP (occurrence: JP)
  Receive Date: 20131206
  Receipt Date: 20131206
  Transmission Date: 20140711
  Serious: Yes (Hospitalization)
  Sender: FDA-Public Use
  Company Number: JP-TAKEDA-2013TJP002046

PATIENT
  Age: 65 Year
  Sex: Male
  Weight: 59 kg

DRUGS (3)
  1. LIOVEL COMBINATION TABLETS LD [Suspect]
     Indication: DIABETES MELLITUS
     Dosage: 1 DF, QD
     Route: 048
     Dates: start: 20130531, end: 20131017
  2. URSO                               /00465701/ [Concomitant]
     Indication: CHOLELITHIASIS
     Dosage: 100 MG, BID
     Route: 048
     Dates: start: 20130823, end: 20131021
  3. URSO                               /00465701/ [Concomitant]
     Dosage: 100 MG, BID
     Route: 048
     Dates: start: 20131126

REACTIONS (1)
  - Hepatic function abnormal [Recovered/Resolved with Sequelae]
